FAERS Safety Report 5612959-5 (Version None)
Quarter: 2008Q1

REPORT INFORMATION
  Report Type: 
  Country: None (occurrence: None)
  Receive Date: 20080204
  Receipt Date: 20080123
  Transmission Date: 20080703
  Serious: Yes (Death, Other)
  Sender: FDA-Public Use
  Company Number: JP-PFIZER INC-2007075347

PATIENT
  Age: 60 Year
  Sex: Female

DRUGS (19)
  1. ZYVOX [Suspect]
     Indication: STAPHYLOCOCCAL INFECTION
     Route: 042
     Dates: start: 20070806, end: 20070809
  2. ZYVOX [Suspect]
     Indication: STAPHYLOCOCCAL INFECTION
     Route: 048
     Dates: start: 20070810, end: 20070829
  3. ASPIRIN [Concomitant]
     Route: 048
     Dates: start: 20070806, end: 20070829
  4. TAKEPRON [Concomitant]
     Route: 048
     Dates: start: 20070806, end: 20070829
  5. PLETAL [Concomitant]
     Route: 048
     Dates: start: 20070806, end: 20070829
  6. ANPLAG [Concomitant]
     Route: 048
     Dates: start: 20070806, end: 20070829
  7. EPADEL [Concomitant]
     Route: 048
     Dates: start: 20070806, end: 20070829
  8. NORVASC [Concomitant]
     Route: 048
     Dates: start: 20070810, end: 20070905
  9. MICARDIS [Concomitant]
     Route: 048
     Dates: start: 20070810, end: 20070905
  10. ALPROSTADIL [Concomitant]
     Dates: start: 20070806, end: 20070818
  11. MEYLON [Concomitant]
     Route: 042
     Dates: start: 20070806, end: 20070818
  12. MEROPEN [Concomitant]
     Route: 042
     Dates: start: 20070806, end: 20070813
  13. LASIX [Concomitant]
     Dates: start: 20070818, end: 20070910
  14. POTASSIUM CANRENOATE [Concomitant]
     Route: 042
     Dates: start: 20070818, end: 20070910
  15. DORMICUM FOR INJECTION [Concomitant]
     Route: 030
     Dates: start: 20070818, end: 20070824
  16. DOPAMINE HYDROCHLORIDE [Concomitant]
     Route: 042
     Dates: start: 20070819, end: 20070824
  17. GASTER [Concomitant]
     Dates: start: 20070819, end: 20070910
  18. ORGARAN [Concomitant]
     Route: 042
     Dates: start: 20070828, end: 20070904
  19. SOL-MELCORT [Concomitant]
     Route: 042
     Dates: start: 20070830, end: 20070830

REACTIONS (2)
  - INFECTION [None]
  - PLATELET COUNT DECREASED [None]
